FAERS Safety Report 10355279 (Version 1)
Quarter: 2014Q3

REPORT INFORMATION
  Report Type: Spontaneous
  Country: BR (occurrence: BR)
  Receive Date: 20140731
  Receipt Date: 20140731
  Transmission Date: 20150326
  Serious: Yes (Other)
  Sender: FDA-Public Use
  Company Number: PHHY2014BR093219

PATIENT

DRUGS (1)
  1. AMOXICILLIN SODIUM+POTASSIUM CLAVULANATE SANDOZ [Suspect]
     Active Substance: AMOXICILLIN\CLAVULANATE POTASSIUM

REACTIONS (6)
  - Aspartate aminotransferase increased [Unknown]
  - Flatulence [Unknown]
  - Faeces discoloured [Unknown]
  - Yellow skin [Unknown]
  - Abdominal distension [Unknown]
  - Blood glucose increased [Unknown]
